FAERS Safety Report 8886548 (Version 2)
Quarter: 2012Q4

REPORT INFORMATION
  Report Type: Report from Study
  Country: CA (occurrence: CA)
  Receive Date: 20121105
  Receipt Date: 20121221
  Transmission Date: 20130627
  Serious: Yes (Hospitalization, Other)
  Sender: FDA-Public Use
  Company Number: CA-ABBOTT-12P-028-1001999-00

PATIENT
  Age: 67 Year
  Sex: Female
  Weight: 46.31 kg

DRUGS (11)
  1. HUMIRA [Suspect]
     Indication: CROHN^S DISEASE
     Route: 058
     Dates: start: 20120111, end: 20121001
  2. RISEDRONATE [Concomitant]
     Indication: OSTEOARTHRITIS
     Route: 048
  3. METHOTREXATE [Concomitant]
     Indication: PRODUCT USED FOR UNKNOWN INDICATION
     Route: 048
  4. COLESTID [Concomitant]
     Indication: DIARRHOEA
  5. PEROXICAM [Concomitant]
     Indication: PRODUCT USED FOR UNKNOWN INDICATION
  6. ACETYLSALICYLIC ACID [Concomitant]
     Indication: PRODUCT USED FOR UNKNOWN INDICATION
     Route: 048
  7. OMEPRAZOLE [Concomitant]
     Indication: PRODUCT USED FOR UNKNOWN INDICATION
     Route: 048
  8. FOLIC ACID [Concomitant]
     Indication: VITAMIN SUPPLEMENTATION
     Route: 048
  9. VITAMIN D [Concomitant]
     Indication: PRODUCT USED FOR UNKNOWN INDICATION
  10. TYLENOL WITH CODEIN #3 [Concomitant]
     Indication: PRODUCT USED FOR UNKNOWN INDICATION
  11. FLU SHOT [Concomitant]
     Indication: PRODUCT USED FOR UNKNOWN INDICATION
     Dates: start: 20121029, end: 20121029

REACTIONS (4)
  - Intestinal obstruction [Unknown]
  - Weight decreased [Unknown]
  - Cholecystectomy [Unknown]
  - Hypertension [Recovered/Resolved]
